FAERS Safety Report 7889158-X (Version None)
Quarter: 2011Q4

REPORT INFORMATION
  Report Type: 
  Country: None (occurrence: None)
  Receive Date: 20111103
  Receipt Date: 20111027
  Transmission Date: 20120403
  Serious: Yes (Other)
  Sender: FDA-Public Use
  Company Number: US-PFIZER INC-2011263179

PATIENT
  Sex: Male
  Weight: 63.492 kg

DRUGS (8)
  1. GABAPENTIN [Suspect]
     Indication: MIGRAINE
  2. NEURONTIN [Suspect]
     Indication: MIGRAINE
  3. GABAPENTIN [Suspect]
     Indication: NERVE INJURY
     Dosage: UNK
     Dates: start: 20040101
  4. TRAMADOL [Concomitant]
     Dosage: 50MG THREE TO FOUR TIMES A DAY
  5. VICODIN [Concomitant]
     Dosage: 7.5MG FOUR TIMES A DAY
  6. NEURONTIN [Suspect]
     Indication: NERVE INJURY
     Dosage: 600 MG, 3X/DAY
     Dates: start: 20040101
  7. ELMIRON [Concomitant]
  8. MORPHINE [Concomitant]

REACTIONS (4)
  - DRUG INEFFECTIVE [None]
  - PRODUCT SUBSTITUTION ISSUE [None]
  - HEARING IMPAIRED [None]
  - MALAISE [None]
